FAERS Safety Report 7827541-9 (Version None)
Quarter: 2011Q4

REPORT INFORMATION
  Report Type: 
  Country: None (occurrence: None)
  Receive Date: 20111020
  Receipt Date: 20111017
  Transmission Date: 20120403
  Serious: Yes (Hospitalization)
  Sender: FDA-Public Use
  Company Number: PHHY2011KR87731

PATIENT
  Sex: Female
  Weight: 50 kg

DRUGS (1)
  1. EXJADE [Suspect]
     Indication: HAEMOCHROMATOSIS
     Dosage: 500 MG, UNK
     Route: 048
     Dates: start: 20091026

REACTIONS (3)
  - H1N1 INFLUENZA [None]
  - PYREXIA [None]
  - COUGH [None]
